FAERS Safety Report 24154968 (Version 1)
Quarter: 2024Q3

REPORT INFORMATION
  Report Type: Spontaneous
  Country: JP (occurrence: JP)
  Receive Date: 20240731
  Receipt Date: 20240731
  Transmission Date: 20241017
  Serious: Yes (Other)
  Sender: NOVARTIS
  Company Number: JP-002147023-NVSJ2024JP009150

PATIENT

DRUGS (1)
  1. SCEMBLIX [Suspect]
     Active Substance: ASCIMINIB HYDROCHLORIDE
     Indication: Product used for unknown indication
     Dosage: 1 DOSAGE FORM, BID(1T AT 6:00 IN THE MORNING AND 1T AT 20:00 BEFORE BEDTIME)
     Route: 048

REACTIONS (2)
  - Depressed level of consciousness [Unknown]
  - Asterixis [Unknown]
